FAERS Safety Report 5361288-6 (Version None)
Quarter: 2007Q2

REPORT INFORMATION
  Report Type: 
  Country: None (occurrence: None)
  Receive Date: 20070530
  Receipt Date: 20070201
  Transmission Date: 20071010
  Serious: No
  Sender: FDA-Public Use
  Company Number: 2006PV025830

PATIENT
  Age: 68 Year
  Sex: Male
  Weight: 108.4097 kg

DRUGS (14)
  1. BYETTA [Suspect]
     Indication: DIABETES MELLITUS NON-INSULIN-DEPENDENT
     Dosage: 5 MCG;BID;SC ; 5 MCG;QAM;SC
     Route: 058
     Dates: start: 20061122, end: 20070128
  2. BYETTA [Suspect]
     Indication: DIABETES MELLITUS NON-INSULIN-DEPENDENT
     Dosage: 5 MCG;BID;SC ; 5 MCG;QAM;SC
     Route: 058
     Dates: start: 20070129
  3. BYETTA [Suspect]
  4. METFORMIN HCL [Concomitant]
  5. GLYBURIDE [Concomitant]
  6. PRILOSEC [Concomitant]
  7. NORPACE [Concomitant]
  8. ATENOLOL [Concomitant]
  9. HYDROCHLOROTHIAZIDE [Concomitant]
  10. FUROSEMIDE [Concomitant]
  11. LISINOPRIL [Concomitant]
  12. DIOVAN [Concomitant]
  13. ZOLOFT [Concomitant]
  14. ASPIRIN [Concomitant]

REACTIONS (7)
  - BLOOD GLUCOSE DECREASED [None]
  - HEART RATE INCREASED [None]
  - INJECTION SITE HAEMORRHAGE [None]
  - NAUSEA [None]
  - TREMOR [None]
  - VOMITING [None]
  - WEIGHT DECREASED [None]
